FAERS Safety Report 15932322 (Version 2)
Quarter: 2019Q2

REPORT INFORMATION
  Report Type: Spontaneous
  Country: US (occurrence: US)
  Receive Date: 20190207
  Receipt Date: 20190424
  Transmission Date: 20190711
  Serious: Yes (Other)
  Sender: FDA-Public Use
  Company Number: US-PFIZER INC-2019043511

PATIENT
  Age: 58 Year
  Sex: Male
  Weight: 122.47 kg

DRUGS (2)
  1. LYRICA [Suspect]
     Active Substance: PREGABALIN
     Indication: RESTLESS LEGS SYNDROME
     Dosage: 150 MG, 2X/DAY
     Route: 048
     Dates: start: 2018
  2. MIRAPEX [Concomitant]
     Active Substance: PRAMIPEXOLE DIHYDROCHLORIDE
     Indication: RESTLESS LEGS SYNDROME
     Dosage: 0.2 MG, 2X/DAY
     Route: 048
     Dates: start: 2009

REACTIONS (3)
  - Product use in unapproved indication [Unknown]
  - Product dose omission [Unknown]
  - Drug dependence [Unknown]

NARRATIVE: CASE EVENT DATE: 2018
